FAERS Safety Report 13935243 (Version 1)
Quarter: 2017Q3

REPORT INFORMATION
  Report Type: Spontaneous
  Country: US (occurrence: None)
  Receive Date: 20170901
  Receipt Date: 20170901
  Transmission Date: 20171127
  Serious: Yes (Hospitalization)
  Sender: FDA-Public Use
  Company Number: None

PATIENT
  Age: 59 Year
  Sex: Female

DRUGS (21)
  1. POTASSIUM [Concomitant]
     Active Substance: POTASSIUM
  2. PANTOPRAZ [Concomitant]
  3. WARFARIN [Concomitant]
     Active Substance: WARFARIN
  4. GABAPENTIN. [Concomitant]
     Active Substance: GABAPENTIN
  5. MONTKALEST [Concomitant]
  6. CALCIUM [Concomitant]
     Active Substance: CALCIUM
  7. LORATADINE. [Concomitant]
     Active Substance: LORATADINE
  8. EC-NAPROSYN [Concomitant]
     Active Substance: NAPROXEN
  9. PLAVIX [Concomitant]
     Active Substance: CLOPIDOGREL BISULFATE
  10. SENNA [Concomitant]
     Active Substance: SENNA LEAF\SENNOSIDES\SENNOSIDES A AND B
  11. BACLOFEN. [Concomitant]
     Active Substance: BACLOFEN
  12. REBIF [Suspect]
     Active Substance: INTERFERON BETA-1A
     Indication: ASTHMA
     Route: 058
     Dates: start: 20151222
  13. NAPROXEN. [Concomitant]
     Active Substance: NAPROXEN
  14. PROTONIX [Concomitant]
     Active Substance: PANTOPRAZOLE SODIUM
  15. MORPHINE [Concomitant]
     Active Substance: MORPHINE
  16. OXCARBAZEPAM [Concomitant]
  17. MULTI [Concomitant]
  18. METHYLPRED [Concomitant]
     Active Substance: METHYLPREDNISOLONE
  19. AMITRIPTYLIN [Concomitant]
     Active Substance: AMITRIPTYLINE
  20. PREDNISONE. [Concomitant]
     Active Substance: PREDNISONE
  21. TOLTERODINE [Concomitant]
     Active Substance: TOLTERODINE

REACTIONS (1)
  - Pneumonia [None]

NARRATIVE: CASE EVENT DATE: 20170820
